FAERS Safety Report 16990610 (Version 1)
Quarter: 2019Q4

REPORT INFORMATION
  Report Type: Spontaneous
  Country: CA (occurrence: CA)
  Receive Date: 20191104
  Receipt Date: 20191104
  Transmission Date: 20200122
  Serious: Yes (Other)
  Sender: FDA-Public Use
  Company Number: CA-VIIV HEALTHCARE LIMITED-CA2019AMR196144

PATIENT
  Age: 27 Year
  Sex: Male

DRUGS (1)
  1. TRIUMEQ [Suspect]
     Active Substance: ABACAVIR SULFATE\DOLUTEGRAVIR SODIUM\LAMIVUDINE
     Indication: HIV INFECTION
     Dosage: UNK

REACTIONS (7)
  - IgA nephropathy [Unknown]
  - Acute kidney injury [Unknown]
  - Haematuria [Recovered/Resolved]
  - Malaise [Unknown]
  - Flank pain [Unknown]
  - Pyrexia [Unknown]
  - Hyperhidrosis [Unknown]
